FAERS Safety Report 19941930 (Version 3)
Quarter: 2022Q1

REPORT INFORMATION
  Report Type: Other
  Country: US (occurrence: None)
  Receive Date: 20211011
  Receipt Date: 20220324
  Transmission Date: 20220423
  Serious: Yes (Other)
  Sender: FDA-Public Use
  Company Number: US-ROCHE-2735284

PATIENT
  Sex: Male

DRUGS (43)
  1. PEGASYS [Suspect]
     Active Substance: PEGINTERFERON ALFA-2A
     Indication: Neoplasm malignant
     Dosage: INJECT 0.5ML (90 MCG) SUBCUTANEOUSLY EVERY WEEK?FORM STRENGTH: 180 MICROGRAM
     Route: 058
  2. PEGASYS [Suspect]
     Active Substance: PEGINTERFERON ALFA-2A
  3. PEGASYS [Suspect]
     Active Substance: PEGINTERFERON ALFA-2A
  4. PEGASYS [Suspect]
     Active Substance: PEGINTERFERON ALFA-2A
     Indication: Histiocytosis
     Dosage: INJECT 180MCG (1ML) SUBCUTANEOUSLY EVERY WEEK
     Route: 058
  5. PEGASYS [Suspect]
     Active Substance: PEGINTERFERON ALFA-2A
  6. PEGASYS [Suspect]
     Active Substance: PEGINTERFERON ALFA-2A
  7. PEGASYS [Suspect]
     Active Substance: PEGINTERFERON ALFA-2A
     Dosage: INJECT 180MCG (1ML) SUBCUTANEOUSLY EVERY WEEK
     Route: 058
  8. PEGASYS [Suspect]
     Active Substance: PEGINTERFERON ALFA-2A
  9. PEGASYS [Suspect]
     Active Substance: PEGINTERFERON ALFA-2A
  10. PEGASYS [Suspect]
     Active Substance: PEGINTERFERON ALFA-2A
     Dosage: 180 UG/ML?DISCARD UNUSED PORTION IN VIAL EACH WEEK
     Route: 058
  11. PEGASYS [Suspect]
     Active Substance: PEGINTERFERON ALFA-2A
  12. PEGASYS [Suspect]
     Active Substance: PEGINTERFERON ALFA-2A
  13. COTELLIC [Suspect]
     Active Substance: COBIMETINIB
     Indication: Neoplasm malignant
     Dosage: TAKE 1 TABLET BY MOUTH EVERY DAY . 14 ON 14 OFF
     Route: 048
  14. COTELLIC [Suspect]
     Active Substance: COBIMETINIB
     Indication: Histiocytosis
  15. TYLENOL [Concomitant]
     Active Substance: ACETAMINOPHEN
     Route: 048
  16. NORVASC [Concomitant]
     Active Substance: AMLODIPINE BESYLATE
     Route: 048
  17. ADDERALL [Concomitant]
     Active Substance: AMPHETAMINE ASPARTATE\AMPHETAMINE SULFATE\DEXTROAMPHETAMINE SACCHARATE\DEXTROAMPHETAMINE SULFATE
     Route: 048
  18. ASPIRIN [Concomitant]
     Active Substance: ASPIRIN
     Route: 048
  19. CALCIUM\VITAMIN D [Concomitant]
     Active Substance: CALCIUM\VITAMIN D
     Route: 048
  20. COREG [Concomitant]
     Active Substance: CARVEDILOL
     Route: 048
  21. KEFLEX [Concomitant]
     Active Substance: CEPHALEXIN
     Route: 048
  22. FLEXERIL [Concomitant]
     Active Substance: CYCLOBENZAPRINE HYDROCHLORIDE
     Route: 048
  23. LEXAPRO [Concomitant]
     Active Substance: ESCITALOPRAM OXALATE
     Route: 048
  24. LASIX [Concomitant]
     Active Substance: FUROSEMIDE
     Route: 048
  25. GLUCOTROL [Concomitant]
     Active Substance: GLIPIZIDE
     Route: 048
  26. GLUCOSAMINE [Concomitant]
     Active Substance: GLUCOSAMINE
     Route: 048
  27. HYDROCORTISONE [Concomitant]
     Active Substance: HYDROCORTISONE
     Indication: Rash
     Dosage: FREQUENCY: APPLY EXTERNALLY AS NEEDED.
     Route: 065
  28. HYDROCORTISONE BUTYRATE [Concomitant]
     Active Substance: HYDROCORTISONE BUTYRATE
     Indication: Eczema
     Dosage: FREQUENCY: APPLY EXTERNALLY AD NEEDED
     Route: 065
  29. HYDROCORTISONE BUTYRATE [Concomitant]
     Active Substance: HYDROCORTISONE BUTYRATE
     Indication: Skin cancer
  30. HUMALOG KWIKPEN [Concomitant]
     Active Substance: INSULIN LISPRO
     Dosage: IF BS IS } 200, HE IS TO INJECT 12 UNITS.
     Route: 058
  31. NIZORAL [Concomitant]
     Active Substance: KETOCONAZOLE
     Dosage: FREQUENCY: APPLY EXTERNALLY AS NEEDED.
     Route: 065
  32. CLARITIN [Concomitant]
     Active Substance: LORATADINE
     Route: 048
  33. MAGNESIUM [Concomitant]
     Active Substance: MAGNESIUM
     Route: 048
  34. GLUCOPHAGE [Concomitant]
     Active Substance: METFORMIN HYDROCHLORIDE
     Route: 048
  35. GLUCOPHAGE [Concomitant]
     Active Substance: METFORMIN HYDROCHLORIDE
     Route: 048
  36. ZOFRAN [Concomitant]
     Active Substance: ONDANSETRON HYDROCHLORIDE
     Route: 048
  37. PANTONIX [Concomitant]
     Route: 048
  38. MIRALAX [Concomitant]
     Active Substance: POLYETHYLENE GLYCOL 3350
     Route: 048
  39. ZOCOR [Concomitant]
     Active Substance: SIMVASTATIN
     Route: 048
  40. BACTRIM DS [Concomitant]
     Active Substance: SULFAMETHOXAZOLE\TRIMETHOPRIM
     Route: 048
  41. DEPO-TESTOSTERONE [Concomitant]
     Active Substance: TESTOSTERONE CYPIONATE
     Dosage: FORM STRENGTH: 200 MG/ML
     Route: 030
  42. KENALOG [Concomitant]
     Active Substance: TRIAMCINOLONE ACETONIDE
     Dosage: FREQUENCY: APPLY EXTERNALLY AS NEEDED.
     Route: 065
  43. CHOLECALCIFEROL [Concomitant]
     Active Substance: CHOLECALCIFEROL
     Dosage: FORM STRENGTH: 1000 UNITS?DOSE: 1000 UNITS
     Route: 048

REACTIONS (6)
  - Skin cancer [Unknown]
  - Urinary tract infection [Unknown]
  - Off label use [Unknown]
  - Drug hypersensitivity [Unknown]
  - Fatigue [Unknown]
  - Rash [Unknown]
